FAERS Safety Report 21642540 (Version 1)
Quarter: 2022Q4

REPORT INFORMATION
  Report Type: Report from Study
  Country: US (occurrence: US)
  Receive Date: 20221125
  Receipt Date: 20221125
  Transmission Date: 20230113
  Serious: No
  Sender: FDA-Public Use
  Company Number: US-ABBVIE-4174658

PATIENT
  Sex: Female

DRUGS (3)
  1. RINVOQ [Suspect]
     Active Substance: UPADACITINIB
     Indication: Product used for unknown indication
     Route: 048
  2. Covid 19 vaccine [Concomitant]
     Indication: COVID-19 immunisation
     Dosage: COVID VACCINE, ONE ON ONCE
     Route: 030
  3. Covid 19 vaccine [Concomitant]
     Indication: COVID-19 immunisation
     Dosage: COVID BOOSTER VACCINE, ONE IN ONCE
     Route: 030

REACTIONS (2)
  - Limb discomfort [Unknown]
  - Musculoskeletal discomfort [Unknown]
